FAERS Safety Report 16989869 (Version 1)
Quarter: 2019Q4

REPORT INFORMATION
  Report Type: Spontaneous
  Country: US (occurrence: US)
  Receive Date: 20190920
  Receipt Date: 20190920
  Transmission Date: 20200122
  Serious: Yes (Other)
  Sender: FDA-Public Use
  Company Number: None

PATIENT
  Age: 62 Year
  Sex: Female
  Weight: 71.67 kg

DRUGS (1)
  1. CAPECITABINE. [Suspect]
     Active Substance: CAPECITABINE
     Indication: BREAST NEOPLASM
     Dosage: ?          OTHER FREQUENCY:3TABSINAMAND2TABS;?
     Route: 048
     Dates: start: 20190307

REACTIONS (2)
  - Metastases to central nervous system [None]
  - Malignant neoplasm progression [None]

NARRATIVE: CASE EVENT DATE: 20190919
